FAERS Safety Report 11400979 (Version 1)
Quarter: 2015Q3

REPORT INFORMATION
  Report Type: Spontaneous
  Country: US (occurrence: US)
  Receive Date: 20150820
  Receipt Date: 20150820
  Transmission Date: 20151125
  Serious: Yes (Life-Threatening, Hospitalization, Other)
  Sender: FDA-Public Use
  Company Number: PHHY2015US098554

PATIENT
  Age: 76 Year
  Sex: Female

DRUGS (3)
  1. CAPECITABINE. [Concomitant]
     Active Substance: CAPECITABINE
     Indication: ADENOCARCINOMA OF COLON
     Route: 065
  2. BEVACIZUMAB [Suspect]
     Active Substance: BEVACIZUMAB
     Indication: ADENOCARCINOMA OF COLON
     Route: 041
  3. OXALIPLATIN. [Suspect]
     Active Substance: OXALIPLATIN
     Indication: ADENOCARCINOMA OF COLON
     Route: 041

REACTIONS (10)
  - Autoimmune haemolytic anaemia [Unknown]
  - Haematochezia [Unknown]
  - Evans syndrome [Unknown]
  - Nausea [Unknown]
  - Haematemesis [Unknown]
  - Chromaturia [Unknown]
  - Hypertension [Unknown]
  - Leukocytosis [Unknown]
  - Disseminated intravascular coagulation [Unknown]
  - Abdominal pain [Unknown]
